FAERS Safety Report 7527901-X (Version None)
Quarter: 2011Q2

REPORT INFORMATION
  Report Type: 
  Country: None (occurrence: None)
  Receive Date: 20110607
  Receipt Date: 20030314
  Transmission Date: 20111010
  Serious: Yes (Death)
  Sender: FDA-Public Use
  Company Number: PHFR2003GB00759

PATIENT
  Sex: Male

DRUGS (6)
  1. CLOZARIL [Suspect]
     Indication: SCHIZOPHRENIA
     Dosage: 600 MG/DAY
     Dates: start: 19911115, end: 20030104
  2. CYPROHEPTADINE HCL [Concomitant]
     Dosage: 12 MG, QD
     Route: 048
     Dates: end: 20030104
  3. AMISULPRIDE [Concomitant]
     Indication: SCHIZOPHRENIA
     Dosage: 400 MG, QD
     Route: 048
     Dates: end: 20030104
  4. SENNA-MINT WAF [Concomitant]
     Indication: CONSTIPATION
     Dosage: 20 MG, QD
     Route: 048
     Dates: end: 20030104
  5. FLUOXETINE HCL [Concomitant]
     Dosage: 60 MG, QD
     Route: 048
     Dates: end: 20030104
  6. LAMOTRIGINE [Concomitant]
     Indication: SCHIZOPHRENIA
     Dosage: 100 MG, QD
     Route: 048
     Dates: end: 20030104

REACTIONS (1)
  - COMPLETED SUICIDE [None]
